FAERS Safety Report 7656964-6 (Version None)
Quarter: 2011Q3

REPORT INFORMATION
  Report Type: 
  Country: None (occurrence: None)
  Receive Date: 20110804
  Receipt Date: 20110721
  Transmission Date: 20111222
  Serious: Yes (Other)
  Sender: FDA-Public Use
  Company Number: DE-UCBSA-036802

PATIENT
  Age: 46 Year
  Sex: Female
  Weight: 48 kg

DRUGS (8)
  1. MESALAMINE [Concomitant]
     Indication: COLITIS MICROSCOPIC
     Route: 048
  2. BUDENOFALK [Concomitant]
     Indication: COLITIS MICROSCOPIC
     Dosage: FREQ:1-3X/DAILY
     Route: 048
  3. VITAMIN D [Concomitant]
     Indication: RHEUMATOID ARTHRITIS
     Route: 048
     Dates: start: 20100209
  4. CERTOLIZUMAB PEGOL [Suspect]
     Indication: RHEUMATOID ARTHRITIS
     Dosage: DOSE: 20MG; NO OF DOSES RECEIVED :14
     Route: 058
     Dates: start: 20101006
  5. CALCIUM ACETATE [Concomitant]
     Indication: RHEUMATOID ARTHRITIS
     Route: 048
     Dates: start: 20100209
  6. FOLIC ACID [Concomitant]
     Indication: RHEUMATOID ARTHRITIS
     Route: 048
     Dates: start: 20081001
  7. METHOTREXATE [Concomitant]
     Indication: RHEUMATOID ARTHRITIS
     Route: 058
     Dates: start: 20081001
  8. PREDNISONE [Concomitant]
     Indication: COLITIS MICROSCOPIC
     Dosage: DAILY
     Route: 048
     Dates: start: 20110412

REACTIONS (1)
  - COLITIS MICROSCOPIC [None]
